FAERS Safety Report 19725313 (Version 1)
Quarter: 2021Q3

REPORT INFORMATION
  Report Type: Spontaneous
  Country: US (occurrence: US)
  Receive Date: 20210819
  Receipt Date: 20210819
  Transmission Date: 20211014
  Serious: No
  Sender: FDA-Public Use
  Company Number: None

PATIENT
  Sex: Female

DRUGS (5)
  1. HCG 10,000 UNIT MDV [Concomitant]
     Dates: start: 20210722
  2. ENDOMETRIN 100MG VAG TABLET [Concomitant]
     Dates: start: 20210722
  3. FOLLISTIM [Suspect]
     Active Substance: FOLLITROPIN
     Indication: INFERTILITY FEMALE
     Route: 058
     Dates: start: 20210722
  4. GANIRELIX 250MCG SYRINGE [Suspect]
     Active Substance: GANIRELIX
     Dates: start: 20210722
  5. AZITHROMYCIN 250MG TABLET [Concomitant]
     Active Substance: AZITHROMYCIN ANHYDROUS
     Dates: start: 20210722

REACTIONS (2)
  - Injection site irritation [None]
  - Injection site erythema [None]
